FAERS Safety Report 10192517 (Version 1)
Quarter: 2014Q2

REPORT INFORMATION
  Report Type: Spontaneous
  Country: IT (occurrence: IT)
  Receive Date: 20140523
  Receipt Date: 20140523
  Transmission Date: 20141212
  Serious: Yes (Other)
  Sender: FDA-Public Use
  Company Number: PHHY2014IT060131

PATIENT
  Age: 39 Year
  Sex: Female

DRUGS (2)
  1. CEFTRIAXONE [Suspect]
     Indication: BRONCHITIS
     Dosage: 1 G, ONCE/SINGLE
     Route: 030
     Dates: start: 20140502, end: 20140502
  2. PANTORC [Concomitant]
     Indication: GASTRIC ULCER
     Dosage: 20 MG, UNK

REACTIONS (4)
  - Malaise [Recovered/Resolved]
  - Erythema [Recovered/Resolved]
  - Pruritus [Recovered/Resolved]
  - Vomiting [Recovered/Resolved]
